FAERS Safety Report 10202522 (Version 1)
Quarter: 2014Q2

REPORT INFORMATION
  Report Type: Spontaneous
  Country: US (occurrence: US)
  Receive Date: 20140528
  Receipt Date: 20140528
  Transmission Date: 20141212
  Serious: Yes (Hospitalization, Other)
  Sender: FDA-Public Use
  Company Number: US-ELI_LILLY_AND_COMPANY-US201405007241

PATIENT
  Age: 74 Year
  Sex: Male

DRUGS (4)
  1. ALIMTA [Suspect]
     Indication: NON-SMALL CELL LUNG CANCER
     Dosage: UNK
     Route: 042
     Dates: start: 20140428
  2. CARBOPLATIN [Concomitant]
     Indication: NON-SMALL CELL LUNG CANCER
  3. AVASTIN [Concomitant]
     Indication: NON-SMALL CELL LUNG CANCER
  4. MEMORO [Concomitant]

REACTIONS (5)
  - Stevens-Johnson syndrome [Unknown]
  - Pancytopenia [Unknown]
  - Hypotension [Unknown]
  - Pyrexia [Unknown]
  - Off label use [Unknown]
